FAERS Safety Report 16834383 (Version 1)
Quarter: 2019Q3

REPORT INFORMATION
  Report Type: Report from Study
  Country: US (occurrence: US)
  Receive Date: 20190920
  Receipt Date: 20190920
  Transmission Date: 20191005
  Serious: Yes (Other)
  Sender: FDA-Public Use
  Company Number: PHHY2018US051020

PATIENT
  Age: 26 Year
  Sex: Female

DRUGS (9)
  1. GILENYA [Suspect]
     Active Substance: FINGOLIMOD HYDROCHLORIDE
     Indication: MULTIPLE SCLEROSIS
     Dosage: UNK UNK, QD
     Route: 048
  2. METOCLOPRAMIDE. [Concomitant]
     Active Substance: METOCLOPRAMIDE
     Indication: PROPHYLAXIS
     Dosage: UNK
     Route: 065
     Dates: start: 20190325, end: 20190325
  3. METHYLPREDNISOLONE. [Concomitant]
     Active Substance: METHYLPREDNISOLONE
     Indication: SINUSITIS
     Dosage: UNK
     Route: 065
     Dates: start: 20190325, end: 20190330
  4. TOPAMAX [Concomitant]
     Active Substance: TOPIRAMATE
     Indication: PARAESTHESIA
     Dosage: UNK
     Route: 065
     Dates: start: 20150910, end: 20161201
  5. DIFENHYDRAMIN [Concomitant]
     Indication: SINUSITIS
     Dosage: UNK
     Route: 065
     Dates: start: 20190325, end: 20190325
  6. ACETAMINOFEN [Concomitant]
     Active Substance: ACETAMINOPHEN
     Indication: HEADACHE
     Dosage: UNK
     Route: 065
     Dates: start: 20190325, end: 20190325
  7. DEXAMETHASONE. [Concomitant]
     Active Substance: DEXAMETHASONE
     Indication: SINUSITIS
     Dosage: UNK
     Route: 065
     Dates: start: 20190325, end: 20190325
  8. AMOXICILIN + ACID CLAVULANIC MERCK GENERICOS [Concomitant]
     Active Substance: AMOXICILLIN\CLAVULANIC ACID
     Indication: SINUSITIS
     Dosage: UNK
     Route: 065
     Dates: start: 20190325, end: 20190405
  9. NORCO [Concomitant]
     Active Substance: ACETAMINOPHEN\HYDROCODONE BITARTRATE
     Indication: PROPHYLAXIS
     Dosage: UNK
     Route: 065
     Dates: start: 20141220

REACTIONS (14)
  - Hypertension [Unknown]
  - Anxiety [Unknown]
  - Deafness neurosensory [Recovered/Resolved]
  - Trichomoniasis [Recovered/Resolved]
  - Onychomycosis [Recovered/Resolved]
  - Hemiparesis [Unknown]
  - Pain in extremity [Unknown]
  - Otitis media acute [Recovered/Resolved]
  - Dermatitis [Recovered/Resolved]
  - Neurodermatitis [Recovered/Resolved]
  - Cervical dysplasia [Recovered/Resolved]
  - Ear pain [Recovered/Resolved]
  - Herpes zoster oticus [Recovered/Resolved]
  - Eustachian tube obstruction [Recovered/Resolved]

NARRATIVE: CASE EVENT DATE: 20170125
